FAERS Safety Report 8341988-6 (Version None)
Quarter: 2012Q2

REPORT INFORMATION
  Report Type: 
  Country: None (occurrence: None)
  Receive Date: 20120507
  Receipt Date: 20120424
  Transmission Date: 20120825
  Serious: Yes (Other)
  Sender: FDA-Public Use
  Company Number: US-MYLANLABS-2012S1008662

PATIENT
  Age: 59 Year
  Sex: Female

DRUGS (1)
  1. NITROFURANTOIN [Suspect]
     Indication: PROPHYLAXIS
     Dosage: 100 MG/DAY
     Route: 065

REACTIONS (5)
  - FATIGUE [None]
  - PHOTOSENSITIVITY REACTION [None]
  - WEIGHT DECREASED [None]
  - NEUROPATHY PERIPHERAL [None]
  - LIVEDO RETICULARIS [None]
